FAERS Safety Report 4440614-6 (Version None)
Quarter: 2004Q3

REPORT INFORMATION
  Report Type: 
  Country: None (occurrence: None)
  Receive Date: 20040903
  Receipt Date: 20040823
  Transmission Date: 20050211
  Serious: Yes (Other)
  Sender: FDA-Public Use
  Company Number: BR-JNJFOC-20040808021

PATIENT
  Age: 50 Year
  Sex: Female
  Weight: 72 kg

DRUGS (3)
  1. ULTRACET [Suspect]
     Indication: PAIN
     Dates: start: 20040802, end: 20040805
  2. OLCADIL [Concomitant]
     Indication: INSOMNIA
  3. VIOXX [Concomitant]
     Indication: ANTIINFLAMMATORY THERAPY

REACTIONS (1)
  - LARYNGEAL OEDEMA [None]
